FAERS Safety Report 21968434 (Version 1)
Quarter: 2023Q1

REPORT INFORMATION
  Report Type: Report from Study
  Country: DE (occurrence: DE)
  Receive Date: 20230208
  Receipt Date: 20230208
  Transmission Date: 20230418
  Serious: Yes (Hospitalization)
  Sender: FDA-Public Use
  Company Number: DE-STADA-268076

PATIENT
  Age: 16 Year

DRUGS (5)
  1. LORAZEPAM [Interacting]
     Active Substance: LORAZEPAM
     Indication: Autism spectrum disorder
     Dosage: UNK
     Route: 065
  2. QUETIAPINE [Interacting]
     Active Substance: QUETIAPINE
     Indication: Autism spectrum disorder
     Dosage: UNK
     Route: 065
  3. ARIPIPRAZOLE [Interacting]
     Active Substance: ARIPIPRAZOLE
     Indication: Autism spectrum disorder
     Dosage: UNK
     Route: 065
  4. MELPERONE [Interacting]
     Active Substance: MELPERONE
     Indication: Autism spectrum disorder
     Dosage: UNK
     Route: 065
  5. MELATONIN [Interacting]
     Active Substance: MELATONIN
     Indication: Autism spectrum disorder
     Dosage: UNK
     Route: 065

REACTIONS (2)
  - Extrapyramidal disorder [Unknown]
  - Drug interaction [Unknown]
